FAERS Safety Report 18217432 (Version 2)
Quarter: 2020Q4

REPORT INFORMATION
  Report Type: Spontaneous
  Country: IQ (occurrence: IQ)
  Receive Date: 20200901
  Receipt Date: 20201001
  Transmission Date: 20210113
  Serious: Yes (Death)
  Sender: FDA-Public Use
  Company Number: IQ-ELI_LILLY_AND_COMPANY-IQ202008011459

PATIENT
  Age: 57 Year
  Sex: Male
  Weight: 55 kg

DRUGS (2)
  1. CYRAMZA [Suspect]
     Active Substance: RAMUCIRUMAB
     Indication: ADENOCARCINOMA GASTRIC
     Dosage: 440 MG, UNKNOWN
     Route: 065
     Dates: start: 20200227
  2. PACLITAXEL. [Concomitant]
     Active Substance: PACLITAXEL
     Indication: GASTRIC CANCER
     Dosage: 120 MG, UNKNOWN
     Route: 065
     Dates: start: 20200227

REACTIONS (1)
  - Malignant neoplasm progression [Fatal]
